FAERS Safety Report 13687659 (Version 2)
Quarter: 2017Q3

REPORT INFORMATION
  Report Type: Spontaneous
  Country: US (occurrence: US)
  Receive Date: 20170625
  Receipt Date: 20170907
  Transmission Date: 20171127
  Serious: Yes (Hospitalization)
  Sender: FDA-Public Use
  Company Number: US-FRESENIUS MEDICAL CARE RENAL THERAPIES GROUP-FMC-1704-000507

PATIENT
  Age: 75 Year
  Sex: Male
  Weight: 56.3 kg

DRUGS (8)
  1. LANTUS SOLOSTAR [Concomitant]
     Active Substance: INSULIN GLARGINE
     Route: 058
     Dates: end: 20151027
  2. CALCIUM ACETATE. [Concomitant]
     Active Substance: CALCIUM ACETATE
     Dosage: 4 CAPSULES,  THREE TIMES DAILY WITH MEALS
     Route: 048
     Dates: start: 20170308, end: 20170308
  3. LEVOTHYROXINE. [Concomitant]
     Active Substance: LEVOTHYROXINE
     Dosage: EVERY MORNING
     Route: 048
     Dates: start: 20170323, end: 20170323
  4. DELFLEX WITH DEXTROSE 2.5% LOW MAGNESIUM LOW CALCIUM [Suspect]
     Active Substance: CALCIUM CHLORIDE\DEXTROSE\MAGNESIUM CHLORIDE\SODIUM CHLORIDE\SODIUM LACTATE
     Indication: END STAGE RENAL DISEASE
     Route: 033
     Dates: start: 20170206, end: 20170502
  5. CARVEDILOL. [Concomitant]
     Active Substance: CARVEDILOL
     Route: 048
     Dates: start: 20150926, end: 20150926
  6. MIDODRINE [Concomitant]
     Active Substance: MIDODRINE
     Dosage: 1 TABLET PRE-DIALYSIS, 1 TABLET DURING DIALYSIS
     Route: 048
     Dates: end: 20160325
  7. ATORVASTATIN [Concomitant]
     Active Substance: ATORVASTATIN
     Dosage: AT BEDTIME AS DIRECTED
     Route: 048
     Dates: start: 20170323, end: 20170323
  8. ASPIRIN. [Concomitant]
     Active Substance: ASPIRIN
     Route: 048
     Dates: end: 20151027

REACTIONS (1)
  - Hypervolaemia [Recovering/Resolving]

NARRATIVE: CASE EVENT DATE: 20170416
